FAERS Safety Report 15836042 (Version 1)
Quarter: 2019Q1

REPORT INFORMATION
  Report Type: Spontaneous
  Country: US (occurrence: US)
  Receive Date: 20190117
  Receipt Date: 20190117
  Transmission Date: 20190417
  Serious: Yes (Hospitalization, Other)
  Sender: FDA-Public Use
  Company Number: US-SUN PHARMACEUTICAL INDUSTRIES LTD-2018US-177814

PATIENT
  Age: 32 Year
  Sex: Male

DRUGS (2)
  1. ACETAMINOPHEN AND CODEINE [Suspect]
     Active Substance: ACETAMINOPHEN\CODEINE PHOSPHATE
     Indication: POSTOPERATIVE ANALGESIA
     Dosage: 300/30 MG TABLETS EVERY 6 HOURS
     Route: 048
  2. HYDROCORTISONE. [Concomitant]
     Active Substance: HYDROCORTISONE
     Indication: RASH
     Dosage: CREAM 1% APPLIED EVERY 6 HOURS
     Route: 061

REACTIONS (1)
  - Acute febrile neutrophilic dermatosis [Recovered/Resolved]
